FAERS Safety Report 16448771 (Version 1)
Quarter: 2019Q2

REPORT INFORMATION
  Report Type: Other
  Country: RO (occurrence: RO)
  Receive Date: 20190619
  Receipt Date: 20190619
  Transmission Date: 20190711
  Serious: Yes (Other)
  Sender: FDA-Public Use
  Company Number: RO-CELLTRION INC.-2019RO021782

PATIENT

DRUGS (2)
  1. TRASTUZUMAB (UNKNOWN) [Suspect]
     Active Substance: TRASTUZUMAB
     Indication: BREAST CANCER METASTATIC
     Dosage: UNK
     Route: 042
  2. TRASTUZUMAB, HYALURONIDASE (HUMAN RECOMBINANT) [Suspect]
     Active Substance: HYALURONIDASE (HUMAN RECOMBINANT)\TRASTUZUMAB
     Indication: BREAST CANCER METASTATIC
     Dosage: 600 MG
     Route: 058
     Dates: start: 20170312, end: 201905

REACTIONS (6)
  - Paralysis [Not Recovered/Not Resolved]
  - Pain in extremity [Not Recovered/Not Resolved]
  - Toxicity to various agents [Not Recovered/Not Resolved]
  - Vomiting [Unknown]
  - Confusional state [Unknown]
  - Hypoaesthesia [Unknown]
